FAERS Safety Report 10390213 (Version 1)
Quarter: 2014Q3

REPORT INFORMATION
  Report Type: Spontaneous
  Country: PT (occurrence: None)
  Receive Date: 20140814
  Receipt Date: 20140814
  Transmission Date: 20150326
  Serious: Yes (Death, Hospitalization)
  Sender: FDA-Public Use
  Company Number: 2014-PT-009884

PATIENT
  Age: 81 Year
  Sex: Female

DRUGS (3)
  1. LEVODOPA BENSERAZIDE (BENSERAZIDE HYDROCHLORIDE, LEVODOPA) [Concomitant]
  2. ROPINIROL 1 A PHARMA (ROPINIROLE HYDROCHLORIDE) [Concomitant]
  3. CLOZAPINE. [Suspect]
     Active Substance: CLOZAPINE
     Indication: HALLUCINATION, VISUAL
     Route: 048

REACTIONS (6)
  - Urinary incontinence [None]
  - Thrombocytopenia [None]
  - Renal failure acute [None]
  - Cardiovascular disorder [None]
  - Anaemia [None]
  - Neuroleptic malignant syndrome [None]
